FAERS Safety Report 6242038-8 (Version None)
Quarter: 2009Q2

REPORT INFORMATION
  Report Type: 
  Country: None (occurrence: None)
  Receive Date: 20090623
  Receipt Date: 20090615
  Transmission Date: 20091009
  Serious: Yes (Hospitalization)
  Sender: FDA-Public Use
  Company Number: PHHY2009FR24356

PATIENT
  Sex: Female
  Weight: 59 kg

DRUGS (4)
  1. TEGRETOL [Suspect]
     Indication: ARTHRALGIA
     Dosage: 200 MG, BID
     Route: 048
     Dates: start: 20090414, end: 20090415
  2. TEGRETOL [Suspect]
     Dosage: 200 MG, TID
     Route: 048
     Dates: start: 20090416, end: 20090423
  3. TEGRETOL [Suspect]
     Dosage: 200 MG, QID
     Route: 048
     Dates: start: 20090424, end: 20090427
  4. KINERET [Concomitant]
     Indication: JUVENILE ARTHRITIS

REACTIONS (3)
  - NEUTROPENIA [None]
  - THROMBOCYTOPENIA [None]
  - WHITE BLOOD CELL COUNT DECREASED [None]
